FAERS Safety Report 21815731 (Version 3)
Quarter: 2024Q3

REPORT INFORMATION
  Report Type: Report from Study
  Country: CN (occurrence: CN)
  Receive Date: 20230104
  Receipt Date: 20240817
  Transmission Date: 20241017
  Serious: Yes (Hospitalization)
  Sender: ACCORD
  Company Number: CN-HENLIUS-22CN007985

PATIENT
  Age: 52 Year
  Sex: Female
  Weight: 60 kg

DRUGS (13)
  1. DOCETAXEL [Suspect]
     Active Substance: DOCETAXEL\DOCETAXEL ANHYDROUS
     Indication: Breast cancer
     Dosage: IV DRIP
     Route: 042
     Dates: start: 20220708, end: 20220708
  2. TRASTUZUMAB [Suspect]
     Active Substance: TRASTUZUMAB
     Indication: Breast cancer
     Dosage: STRENGTH: 150 MILLIGRAM;  IV DRIP
     Route: 042
     Dates: start: 20220708, end: 20220708
  3. CYCLOPHOSPHAMIDE [Suspect]
     Active Substance: CYCLOPHOSPHAMIDE
     Indication: Breast cancer
     Dosage: IV DRIP
     Route: 042
     Dates: start: 20220708, end: 20220708
  4. BICYCLOL [Concomitant]
     Active Substance: BICYCLOL
     Indication: Hepatobiliary disorder prophylaxis
     Dosage: 50 MILLIGRAM, TID
     Route: 048
     Dates: start: 20220729
  5. CYCLOPHOSPHAMIDE [Suspect]
     Active Substance: CYCLOPHOSPHAMIDE
     Indication: Breast cancer
     Dates: start: 20220729, end: 20220729
  6. CYCLOPHOSPHAMIDE [Suspect]
     Active Substance: CYCLOPHOSPHAMIDE
     Indication: Breast cancer
     Dates: start: 20220819, end: 20220819
  7. CYCLOPHOSPHAMIDE [Suspect]
     Active Substance: CYCLOPHOSPHAMIDE
     Indication: Breast cancer
     Dates: start: 20220912, end: 20220912
  8. TRASTUZUMAB [Suspect]
     Active Substance: TRASTUZUMAB
     Indication: Breast cancer
     Dosage: STRENGTH: 150 MILLIGRAM;  IV DRIP
     Route: 042
     Dates: start: 20220729, end: 20220729
  9. TRASTUZUMAB [Suspect]
     Active Substance: TRASTUZUMAB
     Indication: Breast cancer
     Dosage: STRENGTH: 150 MILLIGRAM;  IV DRIP
     Route: 042
     Dates: start: 20220819, end: 20220819
  10. TRASTUZUMAB [Suspect]
     Active Substance: TRASTUZUMAB
     Indication: Breast cancer
     Dosage: STRENGTH: 150 MILLIGRAM;  IV DRIP
     Route: 042
     Dates: start: 20220912, end: 20220912
  11. DOCETAXEL [Suspect]
     Active Substance: DOCETAXEL\DOCETAXEL ANHYDROUS
     Indication: Breast cancer
     Dosage: IV DRIP
     Route: 042
     Dates: start: 20220729, end: 20220729
  12. DOCETAXEL [Suspect]
     Active Substance: DOCETAXEL\DOCETAXEL ANHYDROUS
     Indication: Breast cancer
     Dosage: IV DRIP
     Route: 042
     Dates: start: 20220819, end: 20220819
  13. DOCETAXEL [Suspect]
     Active Substance: DOCETAXEL\DOCETAXEL ANHYDROUS
     Indication: Breast cancer
     Dosage: IV DRIP
     Route: 042
     Dates: start: 20220912, end: 20220912

REACTIONS (3)
  - Hepatic function abnormal [Recovering/Resolving]
  - Neutrophil count decreased [Recovered/Resolved]
  - Anaemia [Recovered/Resolved]

NARRATIVE: CASE EVENT DATE: 20220728
